FAERS Safety Report 6021474-9 (Version None)
Quarter: 2008Q4

REPORT INFORMATION
  Report Type: 
  Country: None (occurrence: None)
  Receive Date: 20081229
  Receipt Date: 20081217
  Transmission Date: 20090506
  Serious: Yes (Hospitalization, Other)
  Sender: FDA-Public Use
  Company Number: CA-PFIZER INC-2008156802

PATIENT

DRUGS (1)
  1. DILANTIN [Suspect]
     Route: 048

REACTIONS (4)
  - BEDRIDDEN [None]
  - GAIT DISTURBANCE [None]
  - HYPERSOMNIA [None]
  - THROMBOSIS [None]
